FAERS Safety Report 11319669 (Version 1)
Quarter: 2015Q3

REPORT INFORMATION
  Report Type: Spontaneous
  Country: US (occurrence: US)
  Receive Date: 20150729
  Receipt Date: 20150729
  Transmission Date: 20151125
  Serious: Yes (Other)
  Sender: FDA-Public Use
  Company Number: US-BAYER-2015-386656

PATIENT
  Age: 29 Year
  Sex: Female
  Weight: 63 kg

DRUGS (4)
  1. ABILIFY [Concomitant]
     Active Substance: ARIPIPRAZOLE
  2. KEPPRA [Concomitant]
     Active Substance: LEVETIRACETAM
  3. ALEVE [Suspect]
     Active Substance: NAPROXEN SODIUM
     Dosage: UNK
     Route: 048
     Dates: start: 20150722
  4. PAXIL [Concomitant]
     Active Substance: PAROXETINE HYDROCHLORIDE

REACTIONS (3)
  - Nausea [Not Recovered/Not Resolved]
  - Intentional overdose [None]
  - Intentional self-injury [Unknown]

NARRATIVE: CASE EVENT DATE: 20150722
